FAERS Safety Report 7560103-X (Version None)
Quarter: 2011Q2

REPORT INFORMATION
  Report Type: 
  Country: None (occurrence: None)
  Receive Date: 20110621
  Receipt Date: 20110602
  Transmission Date: 20111010
  Serious: Yes (Hospitalization)
  Sender: FDA-Public Use
  Company Number: A0862303A

PATIENT
  Sex: Male
  Weight: 107.3 kg

DRUGS (9)
  1. SYNTHROID [Concomitant]
  2. METFORMIN HCL [Concomitant]
  3. AVANDIA [Suspect]
     Dosage: 4MG PER DAY
     Route: 048
     Dates: start: 20030915, end: 20040409
  4. RANITIDINE [Concomitant]
  5. LITHIUM CARBONATE [Concomitant]
  6. GLYBURIDE [Concomitant]
  7. GABAPENTIN [Concomitant]
  8. LOVASTATIN [Concomitant]
  9. IRBESARTAN [Concomitant]

REACTIONS (7)
  - CARDIAC FAILURE CONGESTIVE [None]
  - ATRIAL FIBRILLATION [None]
  - FLUID OVERLOAD [None]
  - CEREBROVASCULAR ACCIDENT [None]
  - CORONARY ARTERY STENOSIS [None]
  - LIVER INJURY [None]
  - CARDIAC ARREST [None]
